FAERS Safety Report 15766774 (Version 1)
Quarter: 2018Q4

REPORT INFORMATION
  Report Type: Spontaneous
  Country: FR (occurrence: FR)
  Receive Date: 20181227
  Receipt Date: 20181227
  Transmission Date: 20190205
  Serious: Yes (Hospitalization, Other)
  Sender: FDA-Public Use
  Company Number: FR-JNJFOC-20181228535

PATIENT
  Age: 71 Year
  Sex: Female

DRUGS (1)
  1. XARELTO [Suspect]
     Active Substance: RIVAROXABAN
     Indication: PRODUCT USED FOR UNKNOWN INDICATION
     Route: 048
     Dates: start: 2018

REACTIONS (12)
  - Pruritus [Unknown]
  - Lung disorder [Unknown]
  - Vulvovaginal pruritus [Not Recovered/Not Resolved]
  - Loss of consciousness [Unknown]
  - Alopecia [Unknown]
  - Onychomadesis [Unknown]
  - Weight decreased [Unknown]
  - Cough [Unknown]
  - Staphylococcal infection [Unknown]
  - Coma [Unknown]
  - Asphyxia [Unknown]
  - Loss of consciousness [Unknown]

NARRATIVE: CASE EVENT DATE: 2018
